FAERS Safety Report 14103800 (Version 2)
Quarter: 2017Q4

REPORT INFORMATION
  Report Type: Spontaneous
  Country: US (occurrence: US)
  Receive Date: 20171018
  Receipt Date: 20171103
  Transmission Date: 20180321
  Serious: Yes (Hospitalization, Other)
  Sender: FDA-Public Use
  Company Number: US-MALLINCKRODT-T201704087

PATIENT
  Sex: Male

DRUGS (1)
  1. FENTANYL CITRATE. [Suspect]
     Active Substance: FENTANYL CITRATE
     Indication: PRODUCT USED FOR UNKNOWN INDICATION
     Dosage: UNK
     Route: 065

REACTIONS (6)
  - Speech disorder [Unknown]
  - Fall [Unknown]
  - Neck injury [Not Recovered/Not Resolved]
  - Tooth loss [Unknown]
  - Rheumatoid arthritis [Not Recovered/Not Resolved]
  - Hypoacusis [Unknown]
